FAERS Safety Report 7343630-X (Version None)
Quarter: 2011Q1

REPORT INFORMATION
  Report Type: 
  Country: None (occurrence: None)
  Receive Date: 20110310
  Receipt Date: 20100805
  Transmission Date: 20110831
  Serious: No
  Sender: FDA-Public Use
  Company Number: A0874170A

PATIENT
  Age: 46 Year
  Sex: Female

DRUGS (2)
  1. NICORETTE [Suspect]
  2. NICOTINE [Concomitant]

REACTIONS (5)
  - NICOTINE DEPENDENCE [None]
  - TOOTH DISCOLOURATION [None]
  - PRODUCT QUALITY ISSUE [None]
  - LIP DISCOLOURATION [None]
  - MALAISE [None]
